FAERS Safety Report 14313669 (Version 3)
Quarter: 2018Q4

REPORT INFORMATION
  Report Type: Report from Study
  Country: FR (occurrence: FR)
  Receive Date: 20171221
  Receipt Date: 20181024
  Transmission Date: 20190204
  Serious: Yes (Hospitalization, Other)
  Sender: FDA-Public Use
  Company Number: FR-PURDUE PHARMA-GBR-2017-0051651

PATIENT
  Age: 35 Year
  Sex: Female

DRUGS (1)
  1. NON-PMN BUPRENORPHINE [Suspect]
     Active Substance: BUPRENORPHINE
     Indication: DRUG ABUSE
     Dosage: UNK
     Route: 048
     Dates: start: 2003

REACTIONS (2)
  - Cryoglobulinaemia [Unknown]
  - Drug abuse [Unknown]

NARRATIVE: CASE EVENT DATE: 2009
